FAERS Safety Report 14742033 (Version 2)
Quarter: 2018Q2

REPORT INFORMATION
  Report Type: Spontaneous
  Country: US (occurrence: US)
  Receive Date: 20180410
  Receipt Date: 20180417
  Transmission Date: 20180711
  Serious: Yes (Other)
  Sender: FDA-Public Use
  Company Number: US-BAYER-2018-064504

PATIENT
  Sex: Female

DRUGS (2)
  1. BAYER LOW DOSE [Suspect]
     Active Substance: ASPIRIN
     Dosage: UNK
     Route: 065
  2. CLARITIN [Suspect]
     Active Substance: LORATADINE
     Indication: URTICARIA
     Dosage: 2 DF, BID
     Route: 048

REACTIONS (8)
  - Urticaria [Unknown]
  - Erythema [Recovered/Resolved]
  - Incorrect dose administered [Unknown]
  - Swelling [Recovering/Resolving]
  - Chills [Recovered/Resolved]
  - Cellulitis [Recovering/Resolving]
  - Drug hypersensitivity [Unknown]
  - Dyspepsia [Unknown]
